FAERS Safety Report 17833225 (Version 6)
Quarter: 2020Q4

REPORT INFORMATION
  Report Type: Spontaneous
  Country: US (occurrence: US)
  Receive Date: 20200528
  Receipt Date: 20201117
  Transmission Date: 20210113
  Serious: No
  Sender: FDA-Public Use
  Company Number: US-GLAXOSMITHKLINE-US2020AMR086497

PATIENT
  Sex: Female

DRUGS (7)
  1. ZEJULA [Suspect]
     Active Substance: NIRAPARIB
     Dosage: 100 MG, QD
     Route: 048
     Dates: start: 20200707
  2. ZEJULA [Suspect]
     Active Substance: NIRAPARIB
     Dosage: 200 MG, QD, DAILY
  3. ZEJULA [Suspect]
     Active Substance: NIRAPARIB
     Dosage: 100 MG, QD
  4. ZEJULA [Suspect]
     Active Substance: NIRAPARIB
     Dosage: 100 MG, QD
     Route: 048
  5. MAGNESIUM [Suspect]
     Active Substance: MAGNESIUM
     Dosage: UNK, EVERY OTHER DAY
  6. MAGNESIUM [Suspect]
     Active Substance: MAGNESIUM
     Indication: PRODUCT USED FOR UNKNOWN INDICATION
     Dosage: UNK
  7. ZEJULA [Suspect]
     Active Substance: NIRAPARIB
     Indication: OVARIAN CANCER
     Dosage: 200 MG, QD, DAILY
     Dates: start: 20200506

REACTIONS (16)
  - Rash erythematous [Recovering/Resolving]
  - Respiratory tract congestion [Recovering/Resolving]
  - Balance disorder [Recovering/Resolving]
  - Decreased appetite [Unknown]
  - Off label use [Unknown]
  - Cough [Recovering/Resolving]
  - Nausea [Unknown]
  - Illness [Unknown]
  - Cognitive disorder [Unknown]
  - Diarrhoea [Recovering/Resolving]
  - Nasopharyngitis [Unknown]
  - Rash [Recovering/Resolving]
  - Product dose omission issue [Unknown]
  - Malaise [Unknown]
  - Headache [Recovering/Resolving]
  - Fatigue [Recovering/Resolving]
